FAERS Safety Report 17480124 (Version 1)
Quarter: 2020Q1

REPORT INFORMATION
  Report Type: Spontaneous
  Country: US (occurrence: US)
  Receive Date: 20200228
  Receipt Date: 20200228
  Transmission Date: 20200409
  Serious: Yes (Death, Hospitalization, Other)
  Sender: FDA-Public Use
  Company Number: US-009507513-2002USA011174

PATIENT
  Age: 76 Year
  Sex: Male

DRUGS (1)
  1. TICE BCG [Suspect]
     Active Substance: BACILLUS CALMETTE-GUERIN SUBSTRAIN TICE LIVE ANTIGEN
     Indication: BLADDER CANCER
     Dosage: 50 MG/WEEKLY
     Route: 043
     Dates: start: 20190131, end: 20190411

REACTIONS (7)
  - Inappropriate schedule of product administration [Unknown]
  - Pancreatic carcinoma [Fatal]
  - Jaundice cholestatic [Unknown]
  - Adverse event [Unknown]
  - Bladder cancer [Unknown]
  - Product availability issue [Unknown]
  - Product dose omission [Unknown]

NARRATIVE: CASE EVENT DATE: 2019
